FAERS Safety Report 6360918-X (Version None)
Quarter: 2009Q3

REPORT INFORMATION
  Report Type: 
  Country: None (occurrence: None)
  Receive Date: 20090918
  Receipt Date: 20090910
  Transmission Date: 20100115
  Serious: Yes (Hospitalization, Other)
  Sender: FDA-Public Use
  Company Number: JP-NOVOPROD-291069

PATIENT
  Age: 66 Year
  Sex: Female
  Weight: 44 kg

DRUGS (7)
  1. INNOLET N CHU [Suspect]
     Indication: OFF LABEL USE
     Dosage: 2400 U, QD
     Route: 058
     Dates: start: 20080116, end: 20080116
  2. INNOLET N CHU [Concomitant]
     Indication: TYPE 2 DIABETES MELLITUS
     Dosage: 24 U, QD (18+0+6)
     Route: 058
  3. PAXIL [Concomitant]
     Dosage: 300 MG, QD
     Route: 048
  4. PYRETHIA                           /00033002/ [Concomitant]
     Dosage: 25 MG, QD
     Route: 048
  5. AMOXAN [Concomitant]
     Dosage: 30 MG, QD
     Route: 048
  6. KIPRES [Concomitant]
     Dosage: 10 MG, QD
     Route: 048
  7. THEOLONG [Concomitant]
     Dosage: 300 MG, QD
     Route: 048

REACTIONS (3)
  - HYPOGLYCAEMIC COMA [None]
  - INTENTIONAL OVERDOSE [None]
  - SUICIDE ATTEMPT [None]
